FAERS Safety Report 13627058 (Version 1)
Quarter: 2017Q2

REPORT INFORMATION
  Report Type: Spontaneous
  Country: AU (occurrence: AU)
  Receive Date: 20170608
  Receipt Date: 20170608
  Transmission Date: 20170830
  Serious: Yes (Other)
  Sender: FDA-Public Use
  Company Number: AU-BRISTOL-MYERS SQUIBB COMPANY-BMS-2017-048133

PATIENT
  Sex: Male

DRUGS (1)
  1. ABILIFY [Suspect]
     Active Substance: ARIPIPRAZOLE
     Indication: SCHIZOPHRENIA
     Route: 065

REACTIONS (5)
  - Restlessness [Recovering/Resolving]
  - Paranoia [Recovering/Resolving]
  - Stereotypy [Unknown]
  - Abnormal behaviour [Recovering/Resolving]
  - Delusion [Recovering/Resolving]
